FAERS Safety Report 9891790 (Version 1)
Quarter: 2014Q1

REPORT INFORMATION
  Report Type: Spontaneous
  Country: US (occurrence: US)
  Receive Date: 20140212
  Receipt Date: 20140212
  Transmission Date: 20141002
  Serious: Yes (Other)
  Sender: FDA-Public Use
  Company Number: US-TEVA-461567USA

PATIENT
  Age: 76 Year
  Sex: Male
  Weight: 95.34 kg

DRUGS (4)
  1. AZILECT [Suspect]
     Indication: PARKINSON^S DISEASE
     Route: 048
     Dates: start: 20131226, end: 20140206
  2. CARBIDOPA W/LEVODOPA [Concomitant]
     Indication: PARKINSON^S DISEASE
  3. NEUPRO PATCH [Concomitant]
     Indication: PARKINSON^S DISEASE
  4. ANTIHYPERTENSIVES [Concomitant]
     Indication: BLOOD PRESSURE

REACTIONS (6)
  - Hypoglycaemia [Not Recovered/Not Resolved]
  - Dyskinesia [Not Recovered/Not Resolved]
  - Faecal incontinence [Not Recovered/Not Resolved]
  - Urinary incontinence [Not Recovered/Not Resolved]
  - Tremor [Not Recovered/Not Resolved]
  - Diarrhoea [Not Recovered/Not Resolved]
